FAERS Safety Report 7492974-X (Version None)
Quarter: 2011Q2

REPORT INFORMATION
  Report Type: 
  Country: None (occurrence: None)
  Receive Date: 20110511
  Receipt Date: 20110503
  Transmission Date: 20111010
  Serious: Yes (Other)
  Sender: FDA-Public Use
  Company Number: B0717810A

PATIENT
  Age: 40 Year
  Sex: Male

DRUGS (6)
  1. TENOFOVIR DISOPROXIL FUMARATE [Suspect]
     Indication: HIV INFECTION
  2. EMTRICITABINE [Suspect]
     Indication: URTICARIA
  3. FLUCONAZOLE [Concomitant]
  4. COMBIVIR [Suspect]
     Indication: HIV INFECTION
  5. AMPHOTERICIN B [Concomitant]
  6. LOPINAVIR AND RITONAVIR [Suspect]
     Indication: HIV INFECTION

REACTIONS (7)
  - DECREASED APPETITE [None]
  - COUGH [None]
  - DYSPHAGIA [None]
  - WEIGHT DECREASED [None]
  - CRYPTOCOCCOSIS [None]
  - MALAISE [None]
  - BONE MARROW TOXICITY [None]
